FAERS Safety Report 5296244-X (Version None)
Quarter: 2007Q2

REPORT INFORMATION
  Report Type: 
  Country: None (occurrence: None)
  Receive Date: 20070413
  Receipt Date: 20070402
  Transmission Date: 20071010
  Serious: Yes (Life-Threatening, Hospitalization)
  Sender: FDA-Public Use
  Company Number: NL-NOVOPROD-261678

PATIENT
  Age: 45 Year
  Sex: Male

DRUGS (3)
  1. GLUCAGEN [Suspect]
     Indication: DIABETES MELLITUS NON-INSULIN-DEPENDENT
     Dosage: 1 MG, QD
     Route: 042
  2. GLIMEPIRIDE [Concomitant]
     Indication: DIABETES MELLITUS NON-INSULIN-DEPENDENT
     Dosage: 2 MG, QD
  3. METOPROLOL SUCCINATE [Concomitant]
     Indication: HYPERTENSION
     Dosage: 50 MG, QD

REACTIONS (3)
  - CONDITION AGGRAVATED [None]
  - MULTI-ORGAN FAILURE [None]
  - PHAEOCHROMOCYTOMA [None]
